FAERS Safety Report 21209362 (Version 3)
Quarter: 2022Q3

REPORT INFORMATION
  Report Type: Spontaneous
  Country: US (occurrence: US)
  Receive Date: 20220813
  Receipt Date: 20220824
  Transmission Date: 20221027
  Serious: Yes (Hospitalization, Other)
  Sender: FDA-Public Use
  Company Number: US-AMGEN-USASP2022134569

PATIENT
  Sex: Female

DRUGS (12)
  1. NEUPOGEN [Suspect]
     Active Substance: FILGRASTIM
     Indication: Idiopathic neutropenia
     Dosage: 300 MICROGRAM EVERY 4-7 DAYS
     Route: 065
  2. LEVOTHYROXINE [Suspect]
     Active Substance: LEVOTHYROXINE
     Indication: Product used for unknown indication
     Route: 065
  3. GABAPENTIN [Concomitant]
     Active Substance: GABAPENTIN
     Dosage: UNK UNK, AS NECESSARY
  4. VALACYCLOVIR [Concomitant]
     Active Substance: VALACYCLOVIR HYDROCHLORIDE
  5. PROPRANOLOL [Concomitant]
     Active Substance: PROPRANOLOL HYDROCHLORIDE
  6. DULOXETINE [Concomitant]
     Active Substance: DULOXETINE
  7. CYCLOBENZAPRINE [Concomitant]
     Active Substance: CYCLOBENZAPRINE
  8. HYDROXYZINE [Concomitant]
     Active Substance: HYDROXYZINE HYDROCHLORIDE
  9. IBUPROFEN [Concomitant]
     Active Substance: IBUPROFEN
     Dosage: UNK UNK, AS NECESSARY
  10. ADDERALL [Concomitant]
     Active Substance: AMPHETAMINE ASPARTATE\AMPHETAMINE SULFATE\DEXTROAMPHETAMINE SACCHARATE\DEXTROAMPHETAMINE SULFATE
  11. ONDANSETRON [Concomitant]
     Active Substance: ONDANSETRON
     Dosage: 8 MILLIGRAM
  12. ACYCLOVIR [Concomitant]
     Active Substance: ACYCLOVIR
     Indication: Herpes simplex

REACTIONS (17)
  - Staphylococcal infection [Recovered/Resolved]
  - Necrotising ulcerative gingivostomatitis [Unknown]
  - White blood cell count decreased [Unknown]
  - Lyme disease [Unknown]
  - Neuropathy peripheral [Not Recovered/Not Resolved]
  - Organ failure [Unknown]
  - Intracranial pressure increased [Unknown]
  - Maternal exposure during pregnancy [Unknown]
  - Raynaud^s phenomenon [Not Recovered/Not Resolved]
  - Anxiety [Unknown]
  - Attention deficit hyperactivity disorder [Unknown]
  - Prolapse [Unknown]
  - Visual impairment [Unknown]
  - Herpes simplex [Unknown]
  - Tachycardia [Unknown]
  - Bone pain [Unknown]
  - Nausea [Unknown]
